FAERS Safety Report 11116795 (Version 1)
Quarter: 2015Q2

REPORT INFORMATION
  Report Type: Spontaneous
  Country: US (occurrence: US)
  Receive Date: 20150515
  Receipt Date: 20150515
  Transmission Date: 20150821
  Serious: No
  Sender: FDA-Public Use
  Company Number: US-BAYER-2015-215126

PATIENT
  Age: 84 Year
  Sex: Male
  Weight: 81 kg

DRUGS (6)
  1. WARFARIN [Concomitant]
     Active Substance: WARFARIN
  2. METHOTREXATE [Concomitant]
     Active Substance: METHOTREXATE
  3. MIRALAX [Suspect]
     Active Substance: POLYETHYLENE GLYCOL 3350
     Indication: CONSTIPATION
     Dosage: 1 UNK, UNK
     Route: 048
     Dates: start: 20150504, end: 20150506
  4. MIRALAX [Suspect]
     Active Substance: POLYETHYLENE GLYCOL 3350
     Indication: CONSTIPATION
     Dosage: UNK
     Route: 048
     Dates: start: 201504, end: 201504
  5. GLIPIZIDE. [Concomitant]
     Active Substance: GLIPIZIDE
  6. LEVOTHYROXINE [Concomitant]
     Active Substance: LEVOTHYROXINE

REACTIONS (3)
  - Drug ineffective [Unknown]
  - Abnormal faeces [Unknown]
  - Product use issue [Unknown]

NARRATIVE: CASE EVENT DATE: 201504
